FAERS Safety Report 14571229 (Version 2)
Quarter: 2018Q1

REPORT INFORMATION
  Report Type: Report from Study
  Country: IE (occurrence: IE)
  Receive Date: 20180226
  Receipt Date: 20180320
  Transmission Date: 20180509
  Serious: Yes (Other)
  Sender: FDA-Public Use
  Company Number: PHHY2018IE015374

PATIENT
  Age: 62 Year
  Sex: Female

DRUGS (1)
  1. VOTRIENT [Suspect]
     Active Substance: PAZOPANIB HYDROCHLORIDE
     Indication: SOFT TISSUE SARCOMA
     Dosage: 800 MG, UNK
     Route: 048
     Dates: start: 20180117, end: 20180312

REACTIONS (9)
  - Soft tissue sarcoma [Unknown]
  - Hypertension [Not Recovered/Not Resolved]
  - Hernia [Unknown]
  - Malignant neoplasm progression [Unknown]
  - Tongue disorder [Unknown]
  - Nausea [Recovered/Resolved]
  - Rash macular [Unknown]
  - Headache [Recovered/Resolved]
  - Nausea [Recovered/Resolved]

NARRATIVE: CASE EVENT DATE: 20180117
